FAERS Safety Report 10486147 (Version 1)
Quarter: 2014Q3

REPORT INFORMATION
  Report Type: Spontaneous
  Country: US (occurrence: None)
  Receive Date: 20140930
  Receipt Date: 20140930
  Transmission Date: 20150326
  Serious: No
  Sender: FDA-Public Use
  Company Number: None

PATIENT
  Age: 58 Year
  Sex: Female

DRUGS (1)
  1. AFINITOR [Suspect]
     Active Substance: EVEROLIMUS
     Indication: NEUROENDOCRINE TUMOUR
     Route: 048

REACTIONS (5)
  - Groin pain [None]
  - Pain in extremity [None]
  - Pain [None]
  - Stomatitis [None]
  - Arthralgia [None]

NARRATIVE: CASE EVENT DATE: 201404
